FAERS Safety Report 23688184 (Version 1)
Quarter: 2024Q1

REPORT INFORMATION
  Report Type: Spontaneous
  Country: US (occurrence: US)
  Receive Date: 20240329
  Receipt Date: 20240329
  Transmission Date: 20240409
  Serious: No
  Sender: FDA-Public Use
  Company Number: US-BIOVITRUM-2024-US-004826

PATIENT
  Age: 81 Year
  Sex: Female

DRUGS (1)
  1. VONJO [Suspect]
     Active Substance: PACRITINIB
     Indication: Myelofibrosis
     Dosage: FOUR CAPSULES DAILY
     Route: 048
     Dates: start: 20230505

REACTIONS (5)
  - Nausea [Unknown]
  - Weight increased [Unknown]
  - Pain [Unknown]
  - Asthenia [Unknown]
  - Dyspnoea exertional [Unknown]
